FAERS Safety Report 23271785 (Version 1)
Quarter: 2023Q4

REPORT INFORMATION
  Report Type: Spontaneous
  Country: FR (occurrence: FR)
  Receive Date: 20231207
  Receipt Date: 20231207
  Transmission Date: 20240110
  Serious: Yes (Life-Threatening)
  Sender: FDA-Public Use
  Company Number: None

PATIENT
  Age: 51 Year
  Sex: Female
  Weight: 61 kg

DRUGS (3)
  1. RITUXIMAB [Suspect]
     Active Substance: RITUXIMAB
     Indication: Multiple sclerosis
     Dosage: FREQ:6 MO
     Route: 042
     Dates: start: 20210114, end: 20230713
  2. DALFAMPRIDINE [Concomitant]
     Active Substance: DALFAMPRIDINE
     Dosage: 2 DF, 1X/DAY
     Route: 048
     Dates: start: 202207
  3. MIRENA [Concomitant]
     Active Substance: LEVONORGESTREL
     Dosage: 1 DF, SINGLE
     Route: 015

REACTIONS (2)
  - Organising pneumonia [Recovering/Resolving]
  - Off label use [Unknown]

NARRATIVE: CASE EVENT DATE: 20210114
